FAERS Safety Report 10207776 (Version 1)
Quarter: 2014Q2

REPORT INFORMATION
  Report Type: Spontaneous
  Country: US (occurrence: US)
  Receive Date: 20140530
  Receipt Date: 20140530
  Transmission Date: 20141212
  Serious: No
  Sender: FDA-Public Use
  Company Number: US-GLAXOSMITHKLINE-A1058695A

PATIENT
  Age: 51 Year
  Sex: Female

DRUGS (2)
  1. VENTOLIN [Suspect]
     Indication: SINUSITIS
     Dosage: 2PUFF AS REQUIRED
     Route: 055
     Dates: start: 2009, end: 20131225
  2. Z PACK [Suspect]
     Indication: INFECTION
     Dates: start: 20131225

REACTIONS (8)
  - Ageusia [Not Recovered/Not Resolved]
  - Paraesthesia oral [Unknown]
  - Glossitis [Unknown]
  - Thermal burn [Unknown]
  - Tongue discolouration [Unknown]
  - Drug administration error [Unknown]
  - Dry mouth [Unknown]
  - Product quality issue [Unknown]
